FAERS Safety Report 8499407-5 (Version None)
Quarter: 2012Q3

REPORT INFORMATION
  Report Type: 
  Country: None (occurrence: None)
  Receive Date: 20120710
  Receipt Date: 20120702
  Transmission Date: 20120928
  Serious: Yes (Other)
  Sender: FDA-Public Use
  Company Number: US-US-EMD SERONO, INC.-7145046

PATIENT
  Sex: Female

DRUGS (2)
  1. UNSPECIFIED MEDICATION [Concomitant]
     Indication: DEPRESSION
  2. REBIF [Suspect]
     Indication: MULTIPLE SCLEROSIS
     Route: 058
     Dates: start: 20091008

REACTIONS (9)
  - ROTATOR CUFF SYNDROME [None]
  - FATIGUE [None]
  - PERIPHERAL NERVE DECOMPRESSION [None]
  - CHILLS [None]
  - ARTHROPOD BITE [None]
  - INJECTION SITE ERYTHEMA [None]
  - INSOMNIA [None]
  - INJECTION SITE PAIN [None]
  - INJECTION SITE HAEMATOMA [None]
